FAERS Safety Report 6670965-6 (Version None)
Quarter: 2010Q2

REPORT INFORMATION
  Report Type: 
  Country: None (occurrence: None)
  Receive Date: 20100407
  Receipt Date: 20100401
  Transmission Date: 20101027
  Serious: No
  Sender: FDA-Public Use
  Company Number: SE-ASTRAZENECA-2010SE14293

PATIENT
  Age: 57 Year
  Sex: Male

DRUGS (6)
  1. SEROQUEL [Suspect]
     Indication: SCHIZOPHRENIA
     Route: 048
     Dates: end: 20090811
  2. SEROQUEL [Suspect]
     Route: 048
     Dates: start: 20090811, end: 20090828
  3. SEROQUEL [Suspect]
     Route: 048
     Dates: start: 20090828, end: 20090903
  4. SEROQUEL [Suspect]
     Route: 048
     Dates: start: 20090903, end: 20090904
  5. CLOZAPINE [Suspect]
     Indication: SCHIZOPHRENIA
     Route: 048
     Dates: end: 20090811
  6. CLOZAPINE [Suspect]
     Route: 048
     Dates: start: 20090824, end: 20090828

REACTIONS (1)
  - NEUTROPENIA [None]
